FAERS Safety Report 5106929-3 (Version None)
Quarter: 2006Q3

REPORT INFORMATION
  Report Type: 
  Country: None (occurrence: None)
  Receive Date: 20060918
  Receipt Date: 20060908
  Transmission Date: 20061208
  Serious: Yes (Death)
  Sender: FDA-Public Use
  Company Number: US-BOEHRINGER INGELHEIM PHARMACEUTICALS, INC.-2006-DE-04847GD

PATIENT
  Age: 50 Year
  Sex: Male

DRUGS (2)
  1. MORPHINE [Suspect]
     Indication: PAIN IN EXTREMITY
  2. MORPHINE [Suspect]
     Indication: INTERVERTEBRAL DISC PROTRUSION

REACTIONS (2)
  - OXYGEN SATURATION DECREASED [None]
  - SUDDEN CARDIAC DEATH [None]
